FAERS Safety Report 11236194 (Version 3)
Quarter: 2015Q3

REPORT INFORMATION
  Report Type: Report from Study
  Country: US (occurrence: US)
  Receive Date: 20150702
  Receipt Date: 20150824
  Transmission Date: 20151125
  Serious: Yes (Hospitalization, Other)
  Sender: FDA-Public Use
  Company Number: US-ACTELION-A-US2015-120431

PATIENT
  Age: 68 Year
  Sex: Female

DRUGS (1)
  1. VELETRI [Suspect]
     Active Substance: EPOPROSTENOL
     Indication: PULMONARY HYPERTENSION
     Dosage: 36 NG/KG, PER MIN
     Route: 042
     Dates: start: 20150130

REACTIONS (11)
  - Cardiac ablation [Unknown]
  - Blood sodium decreased [Unknown]
  - Chest pain [Unknown]
  - Blood potassium decreased [Unknown]
  - Feeding disorder [Unknown]
  - Weight decreased [Unknown]
  - General physical health deterioration [Unknown]
  - Nausea [Unknown]
  - Electrolyte imbalance [Unknown]
  - Transfusion [Unknown]
  - Anaemia [Unknown]

NARRATIVE: CASE EVENT DATE: 20150626
